FAERS Safety Report 6029879-7 (Version None)
Quarter: 2009Q1

REPORT INFORMATION
  Report Type: 
  Country: None (occurrence: None)
  Receive Date: 20090107
  Receipt Date: 20081229
  Transmission Date: 20090719
  Serious: Yes (Other)
  Sender: FDA-Public Use
  Company Number: US-JNJFOC-20081006928

PATIENT
  Sex: Male
  Weight: 104.33 kg

DRUGS (3)
  1. REMICADE [Suspect]
     Route: 042
  2. REMICADE [Suspect]
     Indication: RHEUMATOID ARTHRITIS
     Route: 042
  3. METHOTREXATE [Concomitant]
     Indication: RHEUMATOID ARTHRITIS

REACTIONS (6)
  - ANTIBODY TEST POSITIVE [None]
  - ARTHROPATHY [None]
  - IMMUNOSUPPRESSANT DRUG LEVEL DECREASED [None]
  - LUPUS-LIKE SYNDROME [None]
  - RASH VESICULAR [None]
  - THERAPEUTIC RESPONSE DECREASED [None]
